FAERS Safety Report 12278549 (Version 1)
Quarter: 2016Q2

REPORT INFORMATION
  Report Type: Spontaneous
  Country: CH (occurrence: CH)
  Receive Date: 20160418
  Receipt Date: 20160418
  Transmission Date: 20160815
  Serious: Yes (Hospitalization)
  Sender: FDA-Public Use
  Company Number: CH-MEDA-2016040025

PATIENT
  Age: 85 Year
  Sex: Female

DRUGS (13)
  1. LASIX [Suspect]
     Active Substance: FUROSEMIDE
     Indication: CARDIAC FAILURE
     Route: 041
     Dates: start: 20160211, end: 20160216
  2. EFFEXOR [Concomitant]
     Active Substance: VENLAFAXINE HYDROCHLORIDE
     Dosage: LONG TERM
     Dates: end: 20160222
  3. TOREM 10 MG [Suspect]
     Active Substance: TORSEMIDE
     Indication: CARDIAC FAILURE
     Route: 048
     Dates: start: 20160216, end: 20160222
  4. PRACTOMIL [Suspect]
     Active Substance: GLYCERIN
     Indication: ILEUS
     Route: 054
     Dates: start: 20160218, end: 20160222
  5. DIGOXIN. [Concomitant]
     Active Substance: DIGOXIN
     Dosage: LONG TERM
     Dates: end: 20160222
  6. LYRICA [Concomitant]
     Active Substance: PREGABALIN
     Dosage: LONG TERM
  7. LAXOBERON [Suspect]
     Active Substance: SODIUM PICOSULFATE
     Indication: ILEUS
     Route: 048
     Dates: start: 20160212, end: 20160222
  8. PURSANA [Suspect]
     Active Substance: FIG FRUIT OIL\SORBITOL
     Indication: ILEUS
     Route: 048
     Dates: start: 20160212, end: 20160223
  9. SINTROM [Concomitant]
     Active Substance: ACENOCOUMAROL
     Dosage: LONG TERM
  10. VI-DE 3 [Concomitant]
     Active Substance: CHOLECALCIFEROL
     Dosage: LONG TERM
  11. FORDTRAN [Suspect]
     Active Substance: POLYETHYLENE GLYCOL 4000\POTASSIUM CHLORIDE\SODIUM BICARBONATE\SODIUM CHLORIDE\SODIUM SULFATE ANHYDROUS
     Indication: ILEUS
     Route: 048
     Dates: start: 20160218, end: 20160222
  12. MADOPAR 62.5 [Concomitant]
     Active Substance: BENSERAZIDE HYDROCHLORIDE\LEVODOPA
     Dosage: LONG TERM
  13. NEXIUM [Concomitant]
     Active Substance: ESOMEPRAZOLE MAGNESIUM
     Dates: start: 20160213, end: 20160222

REACTIONS (2)
  - Drug interaction [Recovered/Resolved]
  - Hypokalaemia [Recovered/Resolved]

NARRATIVE: CASE EVENT DATE: 201602
